FAERS Safety Report 22532832 (Version 1)
Quarter: 2023Q2

REPORT INFORMATION
  Report Type: Spontaneous
  Country: ES (occurrence: ES)
  Receive Date: 20230607
  Receipt Date: 20230607
  Transmission Date: 20230722
  Serious: Yes (Hospitalization)
  Sender: FDA-Public Use
  Company Number: None

PATIENT
  Age: 82 Year
  Sex: Female

DRUGS (8)
  1. QUETIAPINE FUMARATE [Interacting]
     Active Substance: QUETIAPINE FUMARATE
     Indication: Product used for unknown indication
     Dosage: 0-0-1. CURSO CL?NICO CEX SALUD MENTAL 09/01/2019: PAUTO QUETIAPINA 25-50MG AL ACOSTARSE
     Route: 048
     Dates: start: 20190109
  2. DONEPEZIL [Interacting]
     Active Substance: DONEPEZIL
     Indication: Cognitive disorder
     Dosage: 1/24 H. CEX NEUROLOG?A 02/08/2018 LE PAUTA 5 MG UN COMPRIMIDO ANTES DE ACOSTARSE DURANTE UN MES. LUE
     Route: 048
     Dates: start: 201808, end: 20190214
  3. VERAPAMIL HYDROCHLORIDE [Interacting]
     Active Substance: VERAPAMIL HYDROCHLORIDE
     Indication: Atrial fibrillation
     Dosage: 1/24 H
     Route: 048
     Dates: start: 20121002, end: 20190208
  4. SERTRALINE [Concomitant]
     Active Substance: SERTRALINE HYDROCHLORIDE
     Indication: Product used for unknown indication
     Dosage: 100 MG, Q24H
     Route: 048
  5. DORMICUM [Concomitant]
     Indication: Product used for unknown indication
     Dosage: 7.5 MG, Q24H
     Route: 048
  6. LORAZEPAM [Concomitant]
     Active Substance: LORAZEPAM
     Indication: Product used for unknown indication
     Dosage: 1 MG, BID
     Route: 048
  7. SINTROM [Concomitant]
     Active Substance: ACENOCOUMAROL
     Indication: Product used for unknown indication
     Dosage: UNK
     Route: 048
  8. OMEPRAZOLE [Concomitant]
     Active Substance: OMEPRAZOLE
     Indication: Product used for unknown indication
     Dosage: 40 MG, BID
     Route: 048

REACTIONS (3)
  - Atrial fibrillation [Recovered/Resolved]
  - Bradycardia [Recovered/Resolved]
  - Syncope [Recovered/Resolved]

NARRATIVE: CASE EVENT DATE: 20190208
